FAERS Safety Report 6277814-9 (Version None)
Quarter: 2009Q3

REPORT INFORMATION
  Report Type: 
  Country: None (occurrence: None)
  Receive Date: 20090720
  Receipt Date: 20090703
  Transmission Date: 20100115
  Serious: Yes (Hospitalization)
  Sender: FDA-Public Use
  Company Number: 2009AL004562

PATIENT
  Age: 52 Year
  Sex: Female

DRUGS (2)
  1. MELOXICAM [Suspect]
     Indication: MUSCULOSKELETAL PAIN
     Dosage: 15 MG; QD; PO
     Route: 048
     Dates: start: 20090422
  2. AMLODIPINE [Concomitant]

REACTIONS (6)
  - BALANCE DISORDER [None]
  - DEAFNESS NEUROSENSORY [None]
  - DIZZINESS [None]
  - EAR DISCOMFORT [None]
  - TINNITUS [None]
  - VOMITING [None]
